FAERS Safety Report 4928100-8 (Version None)
Quarter: 2006Q1

REPORT INFORMATION
  Report Type: 
  Country: None (occurrence: None)
  Receive Date: 20060223
  Receipt Date: 20060207
  Transmission Date: 20060701
  Serious: Yes (Death)
  Sender: FDA-Public Use
  Company Number: 2006BI002670

PATIENT
  Age: 56 Year
  Sex: Female

DRUGS (9)
  1. ZEVALIN [Suspect]
     Indication: BONE MARROW CONDITIONING REGIMEN
     Dosage: 14.8 MBQ/KG;1X;IV
     Route: 042
     Dates: start: 20060101, end: 20060101
  2. ZEVALIN [Suspect]
     Indication: BONE MARROW CONDITIONING REGIMEN
     Dosage: 14.8 MBQ/KG;1X;IV
     Route: 042
     Dates: start: 20060127, end: 20060127
  3. CARMUSTINE [Concomitant]
  4. ETOPOSIDE [Concomitant]
  5. CYTARABINE [Concomitant]
  6. MELPHALAN [Concomitant]
  7. PROPAFEN [Concomitant]
  8. CHLORTHALIDONE [Concomitant]
  9. RITUXIMAB [Concomitant]

REACTIONS (2)
  - CARDIAC ARREST [None]
  - VENTRICULAR FIBRILLATION [None]
